FAERS Safety Report 6398671-6 (Version None)
Quarter: 2009Q4

REPORT INFORMATION
  Report Type: 
  Country: None (occurrence: None)
  Receive Date: 20091013
  Receipt Date: 20091006
  Transmission Date: 20100525
  Serious: Yes (Disabling)
  Sender: FDA-Public Use
  Company Number: ZA-B.I. PHARMACEUTICALS,INC./RIDGEFIELD-2009-ZA-00082ZA

PATIENT
  Age: 72 Year
  Sex: Male

DRUGS (1)
  1. MICARDIS [Suspect]
     Route: 048

REACTIONS (4)
  - MUSCLE FATIGUE [None]
  - MUSCULOSKELETAL PAIN [None]
  - RHABDOMYOLYSIS [None]
  - TENDONITIS [None]
